FAERS Safety Report 8070931-2 (Version None)
Quarter: 2012Q1

REPORT INFORMATION
  Report Type: 
  Country: None (occurrence: None)
  Receive Date: 20120125
  Receipt Date: 20120117
  Transmission Date: 20120608
  Serious: Yes (Death, Other)
  Sender: FDA-Public Use
  Company Number: NO-PFIZER INC-2012019647

PATIENT
  Age: 84 Year
  Sex: Male

DRUGS (8)
  1. CORDARONE [Suspect]
     Indication: ATRIAL FIBRILLATION
     Dosage: 200 MG, 1X/DAY
     Route: 048
     Dates: start: 19900101
  2. SIMVASTATIN [Concomitant]
  3. OXAZEPAM [Concomitant]
  4. WARFARIN [Concomitant]
  5. ACETAMINOPHEN [Concomitant]
  6. NORVASC [Concomitant]
  7. METOPROLOL SUCCINATE [Concomitant]
  8. IMOVANE [Concomitant]

REACTIONS (2)
  - DEATH [None]
  - PULMONARY FIBROSIS [None]
